FAERS Safety Report 4738602-5 (Version None)
Quarter: 2005Q3

REPORT INFORMATION
  Report Type: 
  Country: None (occurrence: None)
  Receive Date: 20050809
  Receipt Date: 20050809
  Transmission Date: 20060218
  Serious: No
  Sender: FDA-Public Use
  Company Number: None

PATIENT
  Sex: Female
  Weight: 47.1741 kg

DRUGS (7)
  1. CYMBALTA [Suspect]
     Indication: NEUROPATHIC PAIN
     Dosage: ONCE DAILY
     Dates: start: 20050201, end: 20050501
  2. MS CONTIN [Concomitant]
  3. SENNA [Concomitant]
  4. ASPIRIN [Concomitant]
  5. PREVACID [Concomitant]
  6. JOBST GLOVE [Concomitant]
  7. . [Concomitant]

REACTIONS (7)
  - CONSTIPATION [None]
  - DYSURIA [None]
  - FEELING ABNORMAL [None]
  - FLATULENCE [None]
  - TREMOR [None]
  - VISION BLURRED [None]
  - WEIGHT DECREASED [None]
